FAERS Safety Report 5282390-3 (Version None)
Quarter: 2007Q1

REPORT INFORMATION
  Report Type: 
  Country: None (occurrence: None)
  Receive Date: 20070326
  Receipt Date: 20070308
  Transmission Date: 20070707
  Serious: Yes (Disabling, Other)
  Sender: FDA-Public Use
  Company Number: 2007JP000944

PATIENT
  Age: 80 Year
  Sex: Female
  Weight: 36.9 kg

DRUGS (15)
  1. TACROLIMUS [Suspect]
     Indication: RHEUMATOID ARTHRITIS
     Dosage: SEE IMAGE
     Route: 048
     Dates: start: 20061204, end: 20061227
  2. TACROLIMUS [Suspect]
     Indication: RHEUMATOID ARTHRITIS
     Dosage: SEE IMAGE
     Route: 048
     Dates: start: 20061228, end: 20070112
  3. TACROLIMUS [Suspect]
     Indication: RHEUMATOID ARTHRITIS
     Dosage: SEE IMAGE
     Route: 048
     Dates: start: 20070113
  4. VOLTAREN [Suspect]
     Indication: RHEUMATOID ARTHRITIS
     Dosage: 75 MG, D, ORAL
     Route: 047
     Dates: end: 20061221
  5. PREDNISOLONE [Suspect]
     Indication: RHEUMATOID ARTHRITIS
     Dosage: SEE IMAGE
     Route: 048
     Dates: end: 20061203
  6. PREDNISOLONE [Suspect]
     Indication: RHEUMATOID ARTHRITIS
     Dosage: SEE IMAGE
     Route: 048
     Dates: start: 20061204, end: 20061221
  7. PREDNISOLONE [Suspect]
     Indication: RHEUMATOID ARTHRITIS
     Dosage: SEE IMAGE
     Route: 048
     Dates: start: 20061223
  8. METHOTREXATE [Suspect]
     Indication: RHEUMATOID ARTHRITIS
     Dosage: SEE IMAGE
     Route: 048
     Dates: end: 20061221
  9. METHOTREXATE [Suspect]
     Indication: RHEUMATOID ARTHRITIS
     Dosage: SEE IMAGE
     Route: 048
     Dates: start: 20061229
  10. AZULFIDINE EN (SULFASALAZINE)  PER ORAL NOS [Suspect]
     Indication: RHEUMATOID ARTHRITIS
     Dosage: 1 G, D, ORAL
     Route: 048
  11. RABEPRAZOLE SODIUM [Concomitant]
  12. FOLIC ACID [Concomitant]
  13. MUCOSTA (REBAMIPIDE) [Concomitant]
  14. BAKTAR (SULFAMETHOXAZOLE, TRIMETHOPRIM) [Concomitant]
  15. RISEDRONATE SODIUM [Concomitant]

REACTIONS (4)
  - ANGINA PECTORIS [None]
  - FALL [None]
  - GASTRIC ULCER HAEMORRHAGE [None]
  - STRESS [None]
